FAERS Safety Report 7135265-9 (Version None)
Quarter: 2010Q4

REPORT INFORMATION
  Report Type: 
  Country: None (occurrence: None)
  Receive Date: 20101203
  Receipt Date: 20101124
  Transmission Date: 20110411
  Serious: Yes (Hospitalization)
  Sender: FDA-Public Use
  Company Number: A0874233A

PATIENT
  Age: 36 Year
  Sex: Male

DRUGS (2)
  1. LAMICTAL [Suspect]
     Indication: BIPOLAR DISORDER
     Route: 065
  2. COUMADIN [Concomitant]
     Dosage: 10MG PER DAY
     Route: 048

REACTIONS (1)
  - PULMONARY EMBOLISM [None]
